FAERS Safety Report 5226870-5 (Version None)
Quarter: 2007Q1

REPORT INFORMATION
  Report Type: 
  Country: None (occurrence: None)
  Receive Date: 20070202
  Receipt Date: 20070123
  Transmission Date: 20070707
  Serious: Yes (Other)
  Sender: FDA-Public Use
  Company Number: GB-JNJFOC-20061101394

PATIENT
  Age: 17 Year
  Sex: Male

DRUGS (4)
  1. TOPAMAX [Suspect]
     Indication: EPILEPSY
     Route: 048
  2. LAMOTRIGINE [Concomitant]
     Indication: EPILEPSY
     Route: 048
     Dates: start: 20050501
  3. CARBAMAZEPINE [Concomitant]
     Indication: EPILEPSY
     Route: 048
     Dates: start: 19980401
  4. MIDAZOLAM HCL [Concomitant]
     Route: 065

REACTIONS (7)
  - ATONIC SEIZURES [None]
  - BALANCE DISORDER [None]
  - COMA [None]
  - EXPIRED DRUG ADMINISTERED [None]
  - NAUSEA [None]
  - PARTIAL SEIZURES [None]
  - WEIGHT DECREASED [None]
